FAERS Safety Report 8974939 (Version 1)
Quarter: 2012Q4

REPORT INFORMATION
  Report Type: Report from Study
  Country: AT (occurrence: AT)
  Receive Date: 20121220
  Receipt Date: 20121220
  Transmission Date: 20130627
  Serious: Yes (Hospitalization)
  Sender: FDA-Public Use
  Company Number: AT-CELGENEUS-009-C5013-12120855

PATIENT
  Age: 78 Year
  Sex: Female
  Weight: 62 kg

DRUGS (6)
  1. CC-5013 [Suspect]
     Indication: MULTIPLE MYELOMA
     Route: 048
     Dates: start: 20070329
  2. CC-5013 [Suspect]
     Route: 048
     Dates: start: 20121021
  3. MELPHALAN [Suspect]
     Indication: MULTIPLE MYELOMA
     Route: 065
     Dates: start: 20070329
  4. MELPHALAN [Suspect]
     Route: 065
     Dates: start: 20080228
  5. PREDNISONE [Suspect]
     Indication: MULTIPLE MYELOMA
     Route: 065
     Dates: start: 20070329
  6. PREDNISONE [Suspect]
     Route: 065
     Dates: start: 20080228

REACTIONS (2)
  - Rectal cancer metastatic [Not Recovered/Not Resolved]
  - Femoral neck fracture [Not Recovered/Not Resolved]
